FAERS Safety Report 8273624-1 (Version None)
Quarter: 2012Q2

REPORT INFORMATION
  Report Type: 
  Country: None (occurrence: None)
  Receive Date: 20120411
  Receipt Date: 20120402
  Transmission Date: 20120825
  Serious: Yes (Hospitalization)
  Sender: FDA-Public Use
  Company Number: DE-BRISTOL-MYERS SQUIBB COMPANY-16442493

PATIENT
  Age: 59 Year
  Sex: Male
  Weight: 65 kg

DRUGS (4)
  1. CISPLATIN [Suspect]
     Indication: HEAD AND NECK CANCER
     Dosage: MOST RECENT INF: 23FEB12
     Route: 042
     Dates: start: 20120127
  2. FLUOROURACIL [Suspect]
     Indication: HEAD AND NECK CANCER
     Dosage: MOST RECENT INF: 23FEB12
     Route: 042
     Dates: start: 20120127
  3. CETUXIMAB [Suspect]
     Indication: HEAD AND NECK CANCER
     Dosage: MOST RECENT INF: 23FEB12
     Route: 042
     Dates: start: 20120127
  4. DOCETAXEL [Suspect]
     Indication: HEAD AND NECK CANCER
     Dosage: MOST RECENT INF: 23FEB12
     Route: 042
     Dates: start: 20120127

REACTIONS (3)
  - RENAL FAILURE ACUTE [None]
  - MUCOSAL INFLAMMATION [None]
  - DIARRHOEA [None]
